FAERS Safety Report 6539030-2 (Version None)
Quarter: 2010Q1

REPORT INFORMATION
  Report Type: 
  Country: None (occurrence: None)
  Receive Date: 20100112
  Receipt Date: 20091218
  Transmission Date: 20100710
  Serious: Yes (Other)
  Sender: FDA-Public Use
  Company Number: AUR-APL-2009-01700

PATIENT
  Sex: Female

DRUGS (5)
  1. ZIDOVUDINE [Suspect]
     Indication: ANTIRETROVIRAL THERAPY
     Dosage: 600
     Dates: start: 20070123
  2. LAMIVUDINE [Suspect]
     Indication: ANTIRETROVIRAL THERAPY
     Dosage: 300
     Dates: start: 20070123
  3. NELFINAVIR MESILATE [Suspect]
     Indication: ANTIRETROVIRAL THERAPY
     Dosage: 2500
     Dates: start: 20070511
  4. LOPINAVIR [Suspect]
     Indication: ANTIRETROVIRAL THERAPY
     Dates: start: 20050123, end: 20070510
  5. RITONAVIR [Suspect]
     Indication: ANTIRETROVIRAL THERAPY
     Dates: start: 20070123, end: 20070510

REACTIONS (2)
  - DRUG EXPOSURE DURING PREGNANCY [None]
  - INTRA-UTERINE DEATH [None]
